FAERS Safety Report 8435525-5 (Version None)
Quarter: 2012Q2

REPORT INFORMATION
  Report Type: 
  Country: None (occurrence: None)
  Receive Date: 20120614
  Receipt Date: 20120606
  Transmission Date: 20120825
  Serious: Yes (Hospitalization)
  Sender: FDA-Public Use
  Company Number: US-BAYER-2012-031191

PATIENT
  Age: 28 Year
  Sex: Female

DRUGS (9)
  1. VALTREX [Concomitant]
     Dosage: 1 GRAM TAKE 2 TABLETS NOW THEN 2 TABLETS IN 12 HOURS
     Route: 048
     Dates: start: 20081229, end: 20090209
  2. MEDROL [Concomitant]
     Dosage: UNK
     Dates: start: 20081201
  3. YASMIN [Suspect]
     Dosage: UNK
     Dates: start: 20070101, end: 20090301
  4. CLINDAMYCIN [Concomitant]
     Dosage: 300 MG, BID
     Route: 048
     Dates: start: 20090223
  5. AUGMENTIN '125' [Concomitant]
  6. YAZ [Suspect]
     Dosage: UNK
     Dates: start: 20070101, end: 20090301
  7. ACETAMINOPHEN W/ CODEINE [Concomitant]
     Dosage: TAKE 1-2 TABLETS EVERY 4-6 HOURS AS NEEDED
     Route: 048
     Dates: start: 20090223
  8. DOXYCYCLINE [Concomitant]
  9. CELEBREX [Concomitant]

REACTIONS (1)
  - PULMONARY EMBOLISM [None]
